FAERS Safety Report 23061765 (Version 1)
Quarter: 2023Q4

REPORT INFORMATION
  Report Type: Spontaneous
  Country: NL (occurrence: NL)
  Receive Date: 20231013
  Receipt Date: 20231013
  Transmission Date: 20240110
  Serious: Yes (Other)
  Sender: FDA-Public Use
  Company Number: None

PATIENT
  Age: 59 Year
  Sex: Female
  Weight: 59 kg

DRUGS (6)
  1. RIVASTIGMINE [Suspect]
     Active Substance: RIVASTIGMINE
     Indication: Dementia Alzheimer^s type
     Dosage: 1 DOSAGE FORMS DAILY; 1 PATCH 1X/DAY   , PLASTER 9.5MG/24H (1AP/EX/TE/SDZ) / BRAND NAME NOT SPECIFIE
     Dates: start: 20230606, end: 20230907
  2. CHOLECALCIFEROL [Concomitant]
     Active Substance: CHOLECALCIFEROL
     Indication: Product used for unknown indication
     Dosage: 800 UNITS, 800IE / BRAND NAME NOT SPECIFIED
  3. PAROXETINE PROLEPHA [Concomitant]
     Indication: Product used for unknown indication
     Dosage: PAROXETINE , (AS HCL ANHY)
  4. BECLOMETASON/FORMOTEROL FISH AER [Concomitant]
     Indication: Product used for unknown indication
     Dosage: 100/6 UG/DOSE (MICROGRAMS PER DOSE), BECLOMETASON/FORMOTEROL AEROSOL   , 100/6MCG/DO 180DO - NON-CUR
  5. VITAMINE B COMPLEX FORTE [Concomitant]
     Indication: Product used for unknown indication
     Dosage: BRAND NAME NOT SPECIFIED
  6. THIAMINE [Concomitant]
     Active Substance: THIAMINE
     Indication: Product used for unknown indication
     Dosage: BRAND NAME NOT SPECIFIED

REACTIONS (1)
  - Hallucination, visual [Recovered/Resolved]
